FAERS Safety Report 8766143 (Version 2)
Quarter: 2013Q4

REPORT INFORMATION
  Report Type: Spontaneous
  Country: NZ (occurrence: NZ)
  Receive Date: 20120904
  Receipt Date: 20131031
  Transmission Date: 20140711
  Serious: Yes (Hospitalization)
  Sender: FDA-Public Use
  Company Number: NZ-009507513-1208NZL010371

PATIENT
  Age: 70 Year
  Sex: Female

DRUGS (5)
  1. FOSAMAX [Suspect]
  2. FOSAMAX PLUS [Suspect]
     Dosage: FOSAMAX PLUS 70/140
  3. ASPIRIN [Concomitant]
  4. PREDNISONE [Concomitant]
     Indication: MYALGIA
     Dosage: UNK
     Dates: start: 2000
  5. TRIAZOLAM [Concomitant]
     Indication: SLEEP DISORDER

REACTIONS (6)
  - Chest pain [Unknown]
  - Dyspnoea [Unknown]
  - Chest pain [Unknown]
  - Asthma [Unknown]
  - Asthma [Unknown]
  - Headache [Unknown]
